FAERS Safety Report 5728373-8 (Version None)
Quarter: 2008Q2

REPORT INFORMATION
  Report Type: 
  Country: None (occurrence: None)
  Receive Date: 20080506
  Receipt Date: 20080502
  Transmission Date: 20081010
  Serious: Yes (Hospitalization)
  Sender: FDA-Public Use
  Company Number: US-BRISTOL-MYERS SQUIBB COMPANY-14173686

PATIENT
  Age: 63 Year
  Sex: Male

DRUGS (3)
  1. PACLITAXEL [Suspect]
     Indication: NEOPLASM MALIGNANT
     Dosage: FORM = INJECTION. ON 18APR08 BEGAN 3RD CYCLE AT 150MG/M2
     Route: 042
     Dates: start: 20080307
  2. CARBOPLATIN [Suspect]
     Indication: NEOPLASM MALIGNANT
     Dosage: FORM = INJECTION. 5 DF = 5 AUC. ON 18APR08 BEGAN 3RD CYCLE AT 4 AUC
     Route: 042
     Dates: start: 20080307
  3. PAZOPANIB [Suspect]
     Indication: NEOPLASM MALIGNANT
     Dosage: FORM = TAB.ON 18APR08 BEGAN 3RD CYCLE AT 200MG
     Route: 048
     Dates: start: 20080308

REACTIONS (5)
  - ANOREXIA [None]
  - ASTHENIA [None]
  - DEHYDRATION [None]
  - NEUTROPENIA [None]
  - PNEUMONIA [None]
